FAERS Safety Report 6819646-6 (Version None)
Quarter: 2010Q3

REPORT INFORMATION
  Report Type: 
  Country: None (occurrence: None)
  Receive Date: 20100707
  Receipt Date: 20090704
  Transmission Date: 20110219
  Serious: No
  Sender: FDA-Public Use
  Company Number: US-PFIZER INC-2009212971

PATIENT

DRUGS (1)
  1. ZYVOX [Suspect]
     Indication: WOUND INFECTION

REACTIONS (1)
  - BLOOD GLUCOSE INCREASED [None]
